FAERS Safety Report 7622345-4 (Version None)
Quarter: 2011Q3

REPORT INFORMATION
  Report Type: 
  Country: None (occurrence: None)
  Receive Date: 20110711
  Receipt Date: 20110704
  Transmission Date: 20111222
  Serious: Yes (Hospitalization)
  Sender: FDA-Public Use
  Company Number: 2011SP029024

PATIENT
  Age: 36 Year
  Sex: Female

DRUGS (3)
  1. CHORIONIC GONADOTROPIN [Suspect]
     Indication: OVULATION INDUCTION
  2. CHORIONIC GONADOTROPIN [Suspect]
     Indication: ASSISTED FERTILISATION
  3. FOLLITROPIN BETA (FOLLITROPIN BETA /01348901/) [Suspect]
     Indication: OVULATION INDUCTION
     Dosage: ; SC
     Route: 058

REACTIONS (3)
  - VISUAL IMPAIRMENT [None]
  - CEREBRAL VASOCONSTRICTION [None]
  - HEADACHE [None]
